FAERS Safety Report 4666220-6 (Version None)
Quarter: 2005Q2

REPORT INFORMATION
  Report Type: 
  Country: None (occurrence: None)
  Receive Date: 20050518
  Receipt Date: 20050510
  Transmission Date: 20051028
  Serious: Yes (Hospitalization)
  Sender: FDA-Public Use
  Company Number: 2005072709

PATIENT
  Age: 70 Year
  Sex: Male
  Weight: 88 kg

DRUGS (4)
  1. LIPITOR [Suspect]
     Indication: BLOOD CHOLESTEROL INCREASED
     Dosage: 20 MG (1 IN 1 D), ORAL
     Route: 048
  2. DIPYRIDAMOLE [Concomitant]
  3. ASPIRIN [Concomitant]
  4. UBIDECARENONE (UBIDECARENONE) [Concomitant]

REACTIONS (1)
  - TENDON RUPTURE [None]
